FAERS Safety Report 16092950 (Version 3)
Quarter: 2019Q2

REPORT INFORMATION
  Report Type: Report from Study
  Country: NL (occurrence: NL)
  Receive Date: 20190320
  Receipt Date: 20190525
  Transmission Date: 20190711
  Serious: Yes (Death, Hospitalization, Other)
  Sender: FDA-Public Use
  Company Number: NL-AMGEN-NLDSL2019041442

PATIENT
  Age: 87 Year
  Sex: Male

DRUGS (19)
  1. COTRIMOXAZOL [Concomitant]
     Active Substance: SULFAMETHOXAZOLE\TRIMETHOPRIM
     Dosage: UNK UNK, QOD, 960 TABLET 160/800MG
  2. DEXTRAN [Concomitant]
     Active Substance: DEXTRAN
     Dosage: 70 UNK
  3. THIAMINE. [Concomitant]
     Active Substance: THIAMINE
     Dosage: 100 MILLIGRAM, QD
  4. BUDESONIDE;FORMOTEROL [Concomitant]
     Dosage: UNK UNK, BID, 400/12UG/DO (=320/9UG) 60DO TURB 2XD 1 INH
  5. XGEVA [Suspect]
     Active Substance: DENOSUMAB
     Indication: PROPHYLAXIS
     Dosage: 120 MILLIGRAM, Q4WK
     Route: 065
     Dates: start: 20190314
  6. DEXTRAN 70;HYPROMELLOSE [Concomitant]
     Dosage: 15 MILLILITER (2 DROPS PER 4 DAYS)
  7. FUROSEMIDE. [Concomitant]
     Active Substance: FUROSEMIDE
     Dosage: 20 MILLIGRAM ^3S1S^
     Route: 048
  8. MOMETASON [Concomitant]
     Active Substance: MOMETASONE FUROATE
     Dosage: UNK UNK^140DO^, QD, 50UG/DO FL 140DO 1XD 2 SPRAY
     Route: 045
  9. TIOTROPIUM [Concomitant]
     Active Substance: TIOTROPIUM
     Dosage: 13 MICROGRAM, QD(1C)
  10. BUDESONIDE;FORMOTEROL [Concomitant]
     Dosage: UNK, BID, 200/6UG/DO (=160/4,5UG) 120DO INH 2XD 2 INH
  11. CALCILAC [CALCIUM CARBONATE;COLECALCIFEROL] [Concomitant]
     Dosage: (1.25GRAM/400 IE) 500 MILLIGRAM, QD
     Route: 048
  12. GOSERELINE [Concomitant]
     Active Substance: GOSERELIN
     Dosage: 10 MILLIGRAM, QMO (1 IMPLANTION) 10,8MG 1X PER 3M 1 INJ
  13. PREDNISOLONE. [Concomitant]
     Active Substance: PREDNISOLONE
     Dosage: 5 MILLIGRAM, QD
     Route: 048
  14. METOCLOPRAMIDE. [Concomitant]
     Active Substance: METOCLOPRAMIDE
     Dosage: 10 MILLIGRAM, TID
  15. GOSERELINE [Concomitant]
     Active Substance: GOSERELIN
     Dosage: 10.8 MILLIGRAM, Q3MO
  16. LOSARTAN. [Concomitant]
     Active Substance: LOSARTAN
     Dosage: 100 MILLIGRAM, QD
     Route: 048
  17. GLIMEPIRIDE. [Concomitant]
     Active Substance: GLIMEPIRIDE
     Dosage: 1 MILLIGRAM, QD
     Route: 048
  18. HYPROMELLOSE [Concomitant]
     Active Substance: HYPROMELLOSES
     Dosage: UNK UNK, QID, 1/3MG/ML FL 15ML 4XD 2 DROPS
     Route: 047
  19. VITAMIN B COMPLEX [Concomitant]
     Active Substance: CYANOCOBALAMIN\DEXPANTHENOL\NIACINAMIDE\PYRIDOXINE HYDROCHLORIDE\RIBOFLAVIN 5^-PHOSPHATE SODIUM\THIAMINE HYDROCHLORIDE\VITAMIN B COMPLEX
     Dosage: UNK UNK, QD

REACTIONS (4)
  - Weight decreased [Unknown]
  - Lung disorder [Unknown]
  - Death [Fatal]
  - Feeding disorder [Unknown]

NARRATIVE: CASE EVENT DATE: 20190516
